FAERS Safety Report 15006518 (Version 1)
Quarter: 2018Q2

REPORT INFORMATION
  Report Type: Report from Study
  Country: US (occurrence: US)
  Receive Date: 20180613
  Receipt Date: 20180613
  Transmission Date: 20180711
  Serious: Yes (Other)
  Sender: FDA-Public Use
  Company Number: US-US WORLDMEDS, LLC-USW201708-001149

PATIENT
  Age: 75 Year
  Sex: Female
  Weight: 70.76 kg

DRUGS (12)
  1. METOPROLOL SUCCINATE. [Concomitant]
     Active Substance: METOPROLOL SUCCINATE
  2. PANTOPRAZOLE [Concomitant]
     Active Substance: PANTOPRAZOLE
     Indication: GASTROOESOPHAGEAL REFLUX DISEASE
  3. REQUIP [Interacting]
     Active Substance: ROPINIROLE HYDROCHLORIDE
     Indication: PARKINSON^S DISEASE
  4. APOKYN [Suspect]
     Active Substance: APOMORPHINE HYDROCHLORIDE
     Indication: PARKINSON^S DISEASE
     Route: 058
     Dates: start: 20170504, end: 20170720
  5. ESCITALOPRAM [Concomitant]
     Active Substance: ESCITALOPRAM OXALATE
  6. MIDODRINE [Concomitant]
     Active Substance: MIDODRINE
     Indication: HYPOTENSION
  7. ASA [Concomitant]
     Active Substance: ASPIRIN
  8. SINEMET [Interacting]
     Active Substance: CARBIDOPA\LEVODOPA
  9. DILTIAZEM CD 120 [Concomitant]
  10. NABUMETONE. [Concomitant]
     Active Substance: NABUMETONE
     Indication: PAIN
  11. TEMAZEPAN [Concomitant]
     Indication: ANXIETY
  12. CARBO/LEVO [Concomitant]
     Indication: PARKINSON^S DISEASE
     Route: 048

REACTIONS (2)
  - Drug interaction [Unknown]
  - Parkinson^s disease [Recovered/Resolved]

NARRATIVE: CASE EVENT DATE: 201707
